FAERS Safety Report 22252151 (Version 1)
Quarter: 2023Q2

REPORT INFORMATION
  Report Type: Spontaneous
  Country: US (occurrence: US)
  Receive Date: 20230425
  Receipt Date: 20230425
  Transmission Date: 20230722
  Serious: No
  Sender: FDA-Public Use
  Company Number: US-BoehringerIngelheim-2023-BI-233231

PATIENT
  Age: 77 Year
  Sex: Female

DRUGS (10)
  1. PRADAXA [Suspect]
     Active Substance: DABIGATRAN ETEXILATE MESYLATE
     Indication: Product used for unknown indication
     Dates: start: 202304
  2. VENLAFAXINE HYDROCHLORIDE [Concomitant]
     Active Substance: VENLAFAXINE HYDROCHLORIDE
     Indication: Product used for unknown indication
  3. IRON [Concomitant]
     Active Substance: IRON
     Indication: Product used for unknown indication
  4. AMIODARONE [Concomitant]
     Active Substance: AMIODARONE
     Indication: Product used for unknown indication
  5. METOPROLOL [Concomitant]
     Active Substance: METOPROLOL
     Indication: Product used for unknown indication
  6. ATORVASTATIN [Concomitant]
     Active Substance: ATORVASTATIN
     Indication: Product used for unknown indication
  7. SPIRONOLACTONE [Concomitant]
     Active Substance: SPIRONOLACTONE
     Indication: Product used for unknown indication
  8. VITAMIN B [Concomitant]
     Active Substance: VITAMIN B
     Indication: Product used for unknown indication
  9. VITAMIN D [Concomitant]
     Active Substance: VITAMIN D NOS
     Indication: Product used for unknown indication
  10. Kirkland Brand Stool Softner [Concomitant]
     Indication: Product used for unknown indication

REACTIONS (6)
  - Rectal haemorrhage [Not Recovered/Not Resolved]
  - Productive cough [Not Recovered/Not Resolved]
  - Sinusitis [Unknown]
  - Visual impairment [Unknown]
  - Balance disorder [Unknown]
  - Sinonasal obstruction [Unknown]

NARRATIVE: CASE EVENT DATE: 20230401
